FAERS Safety Report 16822985 (Version 2)
Quarter: 2019Q4

REPORT INFORMATION
  Report Type: Spontaneous
  Country: US (occurrence: US)
  Receive Date: 20190918
  Receipt Date: 20191115
  Transmission Date: 20200122
  Serious: No
  Sender: FDA-Public Use
  Company Number: US-SUNOVION-2019SUN003820

PATIENT
  Age: 20 Year
  Sex: Female

DRUGS (7)
  1. VIIBRYD [Suspect]
     Active Substance: VILAZODONE HYDROCHLORIDE
     Dosage: UNK
  2. PROPANOL [Suspect]
     Active Substance: PROPRANOLOL HYDROCHLORIDE
     Dosage: UNK
  3. LATUDA [Suspect]
     Active Substance: LURASIDONE HYDROCHLORIDE
     Dosage: 40 MG
     Route: 048
  4. LATUDA [Suspect]
     Active Substance: LURASIDONE HYDROCHLORIDE
     Dosage: 60 MG
     Route: 048
  5. LATUDA [Suspect]
     Active Substance: LURASIDONE HYDROCHLORIDE
     Dosage: 80 MG
     Route: 048
  6. LITHIUM. [Suspect]
     Active Substance: LITHIUM
     Dosage: UNK
  7. LATUDA [Suspect]
     Active Substance: LURASIDONE HYDROCHLORIDE
     Indication: BIPOLAR DISORDER
     Dosage: 20 MG, QD
     Route: 048

REACTIONS (10)
  - Fatigue [Unknown]
  - Discomfort [Unknown]
  - Limb discomfort [Unknown]
  - Restlessness [Recovered/Resolved]
  - Head discomfort [Unknown]
  - Speech disorder [Unknown]
  - Feeling abnormal [Unknown]
  - Musculoskeletal stiffness [Unknown]
  - Akathisia [Unknown]
  - Depression [Unknown]
